FAERS Safety Report 4460966-0 (Version None)
Quarter: 2004Q3

REPORT INFORMATION
  Report Type: 
  Country: None (occurrence: None)
  Receive Date: 20040928
  Receipt Date: 20040618
  Transmission Date: 20050211
  Serious: No
  Sender: FDA-Public Use
  Company Number: US-GLAXOSMITHKLINE-A0515211A

PATIENT
  Sex: Male

DRUGS (6)
  1. ADVAIR DISKUS 100/50 [Suspect]
     Dosage: 1PUFF TWICE PER DAY
     Route: 055
  2. FLONASE [Suspect]
     Indication: ILL-DEFINED DISORDER
     Route: 045
  3. THEO-DUR [Concomitant]
  4. ASTELIN SPRAY [Concomitant]
  5. MUCOFEN [Concomitant]
  6. OXYGEN [Concomitant]

REACTIONS (2)
  - HYPOAESTHESIA ORAL [None]
  - PARAESTHESIA [None]
